FAERS Safety Report 5118036-4 (Version None)
Quarter: 2006Q3

REPORT INFORMATION
  Report Type: 
  Country: None (occurrence: None)
  Receive Date: 20060929
  Receipt Date: 20060922
  Transmission Date: 20061208
  Serious: Yes (Hospitalization)
  Sender: FDA-Public Use
  Company Number: IT-BOEHRINGER INGELHEIM PHARMACEUTICALS, INC.-2006-BP-11409YA

PATIENT
  Sex: Male

DRUGS (9)
  1. OMNIC CAPSULES [Suspect]
     Indication: BENIGN PROSTATIC HYPERPLASIA
     Route: 048
     Dates: start: 20060822, end: 20060825
  2. METOPROLOL [Concomitant]
  3. TRIATEC [Concomitant]
  4. ESAPENT [Concomitant]
  5. ASPIRIN [Concomitant]
  6. SIVASTIN [Concomitant]
  7. ZANEDIP [Concomitant]
  8. DEPONIT [Concomitant]
  9. TAVOR [Concomitant]

REACTIONS (1)
  - TACHYCARDIA [None]
